FAERS Safety Report 11652054 (Version 1)
Quarter: 2015Q4

REPORT INFORMATION
  Report Type: Spontaneous
  Country: US (occurrence: US)
  Receive Date: 20151022
  Receipt Date: 20151022
  Transmission Date: 20160304
  Serious: No
  Sender: FDA-Public Use
  Company Number: US-PFIZER INC-2015343704

PATIENT
  Age: 68 Year
  Sex: Male
  Weight: 120 kg

DRUGS (3)
  1. GABAPENTIN. [Suspect]
     Active Substance: GABAPENTIN
     Indication: NEURALGIA
     Dosage: 300 MG, 3X/DAY
     Route: 048
  2. GABAPENTIN. [Suspect]
     Active Substance: GABAPENTIN
     Dosage: 600 MG, 3X/DAY
     Route: 048
  3. NEURONTIN [Suspect]
     Active Substance: GABAPENTIN

REACTIONS (3)
  - Burning sensation [Unknown]
  - Drug ineffective [Unknown]
  - Paraesthesia [Unknown]
